FAERS Safety Report 7033130-9 (Version None)
Quarter: 2010Q4

REPORT INFORMATION
  Report Type: 
  Country: None (occurrence: None)
  Receive Date: 20101007
  Receipt Date: 20101004
  Transmission Date: 20110411
  Serious: Yes (Death)
  Sender: FDA-Public Use
  Company Number: US-BAYER-201035723NA

PATIENT
  Age: 51 Year
  Sex: Female

DRUGS (3)
  1. AVELOX [Suspect]
     Indication: SINUSITIS
     Dosage: TOTAL DAILY DOSE: 400 MG  UNIT DOSE: 400 MG
     Route: 048
     Dates: start: 20100929
  2. LISINOPRIL [Concomitant]
     Dosage: TOTAL DAILY DOSE: 20 MG
  3. ASPIRIN [Concomitant]

REACTIONS (1)
  - COMPLETED SUICIDE [None]
